FAERS Safety Report 12167000 (Version 2)
Quarter: 2016Q1

REPORT INFORMATION
  Report Type: Spontaneous
  Country: IT (occurrence: IT)
  Receive Date: 20160310
  Receipt Date: 20160322
  Transmission Date: 20160526
  Serious: Yes (Other)
  Sender: FDA-Public Use
  Company Number: IT-ACCORD-038472

PATIENT
  Age: 45 Year
  Sex: Female
  Weight: 70 kg

DRUGS (3)
  1. PACLITAXEL ACCORD [Suspect]
     Active Substance: PACLITAXEL
     Indication: BREAST CANCER STAGE IV
     Dosage: STRENGTH: 6 MG/ML
     Route: 042
     Dates: start: 20160224, end: 20160224
  2. CLARITYN BAYER [Concomitant]
     Dosage: STRENGTH: 10 MG?MAH: BAYER S.P.A.
     Route: 048
     Dates: start: 20160221, end: 20160223
  3. DELTACORTENE BRUNO [Concomitant]
     Dosage: STRENGTH: 25 MG?MAH: BRUNO FARMACEUTICI S.P.A
     Route: 048
     Dates: start: 20160221, end: 20160223

REACTIONS (2)
  - Throat tightness [Recovering/Resolving]
  - Abdominal pain upper [Recovering/Resolving]

NARRATIVE: CASE EVENT DATE: 20160224
